FAERS Safety Report 6496558-1 (Version None)
Quarter: 2009Q4

REPORT INFORMATION
  Report Type: 
  Country: None (occurrence: None)
  Receive Date: 20091210
  Receipt Date: 20091125
  Transmission Date: 20100525
  Serious: Yes (Hospitalization, Other)
  Sender: FDA-Public Use
  Company Number: AUR-APL-2009-01428

PATIENT
  Age: 61 Year
  Sex: Male

DRUGS (5)
  1. ALENDRONATE SODIUM [Suspect]
     Indication: OSTEOPOROSIS
  2. ESOMEPRAZOLE SODIUM (NEXIUM) [Suspect]
     Indication: GASTROOESOPHAGEAL REFLUX DISEASE
  3. CALCIUM [Concomitant]
  4. METHOTREXATE [Concomitant]
  5. PREDNISONE [Suspect]

REACTIONS (4)
  - FEMUR FRACTURE [None]
  - IMPAIRED HEALING [None]
  - PATHOLOGICAL FRACTURE [None]
  - STRESS FRACTURE [None]
